FAERS Safety Report 6804393-7 (Version None)
Quarter: 2010Q2

REPORT INFORMATION
  Report Type: 
  Country: None (occurrence: None)
  Receive Date: 20100628
  Receipt Date: 20070321
  Transmission Date: 20101027
  Serious: No
  Sender: FDA-Public Use
  Company Number: US-PFIZER INC-2007003044

PATIENT
  Sex: Male
  Weight: 90.72 kg

DRUGS (10)
  1. PROCARDIA XL [Suspect]
     Indication: PERIPHERAL COLDNESS
     Dates: start: 20070105
  2. PROCARDIA XL [Suspect]
     Indication: NERVE INJURY
  3. PROCARDIA XL [Suspect]
     Indication: RAYNAUD'S PHENOMENON
  4. NEXIUM [Concomitant]
  5. VITAMIN C [Concomitant]
  6. VITAMIN B COMPLEX CAP [Concomitant]
  7. VITAMIN D [Concomitant]
  8. CALCIUM CARBONATE [Concomitant]
  9. FISH OIL [Concomitant]
  10. ACETYLSALICYLIC ACID [Concomitant]

REACTIONS (1)
  - DRUG INEFFECTIVE [None]
